FAERS Safety Report 5894433-4 (Version None)
Quarter: 2008Q3

REPORT INFORMATION
  Report Type: 
  Country: None (occurrence: None)
  Receive Date: 20080923
  Receipt Date: 20080923
  Transmission Date: 20090109
  Serious: Yes (Other)
  Sender: FDA-Public Use
  Company Number: None

PATIENT
  Age: 60 Year
  Sex: Female
  Weight: 95.709 kg

DRUGS (2)
  1. CLOZAPINE [Suspect]
     Indication: SCHIZOPHRENIA
     Dosage: 400MG HS QHS PO
     Route: 048
     Dates: start: 20050102
  2. CLOZAPINE [Suspect]
     Indication: SCHIZOPHRENIA
     Dosage: 400MG HS QHS PO
     Route: 048
     Dates: start: 20080501

REACTIONS (4)
  - DIZZINESS [None]
  - EJECTION FRACTION DECREASED [None]
  - ORTHOSTATIC HYPOTENSION [None]
  - TACHYCARDIA [None]
